FAERS Safety Report 8613303 (Version 2)
Quarter: 2012Q4

REPORT INFORMATION
  Report Type: 
  Country: US (occurrence: US)
  Receive Date: 20120613
  Receipt Date: 20121214
  Transmission Date: 20130627
  Serious: Yes (Other)
  Sender: FDA-Public Use
  Company Number: US-ASTRAZENECA-2012SE36659

PATIENT
  Age: 470 Month
  Sex: Female
  Weight: 72.6 kg

DRUGS (5)
  1. SEROQUEL [Suspect]
     Indication: BIPOLAR DISORDER
     Route: 048
  2. SEROQUEL [Suspect]
     Indication: BIPOLAR DISORDER
     Route: 048
  3. SEROQUEL [Suspect]
     Indication: BIPOLAR DISORDER
     Route: 048
  4. SEROQUEL [Suspect]
     Indication: BIPOLAR DISORDER
     Route: 048
  5. PROZAC [Concomitant]
     Indication: BIPOLAR I DISORDER
     Route: 048

REACTIONS (5)
  - Convulsion [Unknown]
  - Disorientation [Unknown]
  - Dizziness [Unknown]
  - Somnolence [Unknown]
  - Intentional drug misuse [Unknown]
